FAERS Safety Report 22083749 (Version 1)
Quarter: 2023Q1

REPORT INFORMATION
  Report Type: Spontaneous
  Country: US (occurrence: US)
  Receive Date: 20230310
  Receipt Date: 20230310
  Transmission Date: 20230418
  Serious: Yes (Hospitalization, Other)
  Sender: FDA-Public Use
  Company Number: US-MYLANLABS-2023M1025496

PATIENT
  Age: 38 Year
  Sex: Male

DRUGS (5)
  1. TRAMADOL [Suspect]
     Active Substance: TRAMADOL
     Indication: Product used for unknown indication
     Dosage: 50 MILLIGRAM, QD; 12 TO 14 TRAMADOL 50MG TABLETS DAILY
     Route: 065
  2. GABAPENTIN [Suspect]
     Active Substance: GABAPENTIN
     Indication: Drug withdrawal syndrome
     Dosage: 300 MILLIGRAM, TID 3 TIMES A DAY
     Route: 065
  3. CLONIDINE [Suspect]
     Active Substance: CLONIDINE
     Indication: Drug withdrawal syndrome
     Dosage: 0.1 MILLIGRAM, BID
     Route: 065
  4. SERTRALINE [Suspect]
     Active Substance: SERTRALINE HYDROCHLORIDE
     Indication: Depression
     Dosage: 50 MILLIGRAM, QD
     Route: 065
  5. HYDROCODONE [Suspect]
     Active Substance: HYDROCODONE
     Indication: Product used for unknown indication
     Dosage: UNK
     Route: 065

REACTIONS (7)
  - Drug use disorder [Unknown]
  - Suicidal ideation [Unknown]
  - Drug withdrawal syndrome [Unknown]
  - Drug ineffective for unapproved indication [Unknown]
  - Drug abuse [Unknown]
  - Overdose [Unknown]
  - Off label use [Unknown]
